FAERS Safety Report 19421830 (Version 2)
Quarter: 2021Q2

REPORT INFORMATION
  Report Type: Report from Study
  Country: NL (occurrence: NL)
  Receive Date: 20210615
  Receipt Date: 20210625
  Transmission Date: 20210717
  Serious: Yes (Other)
  Sender: FDA-Public Use
  Company Number: NL-BEH-2021132927

PATIENT
  Age: 40 Year
  Sex: Female
  Weight: 58 kg

DRUGS (13)
  1. PRIVIGEN [Suspect]
     Active Substance: HUMAN IMMUNOGLOBULIN G
     Dosage: UNK
     Route: 042
     Dates: start: 20210608, end: 20210608
  2. PRIVIGEN [Suspect]
     Active Substance: HUMAN IMMUNOGLOBULIN G
     Dosage: UNK
     Route: 042
     Dates: start: 20210608, end: 20210608
  3. PRIVIGEN [Suspect]
     Active Substance: HUMAN IMMUNOGLOBULIN G
     Dosage: UNK
     Route: 042
     Dates: start: 20210609, end: 20210609
  4. PRIVIGEN [Suspect]
     Active Substance: HUMAN IMMUNOGLOBULIN G
     Dosage: UNK
     Route: 042
     Dates: start: 20210609, end: 20210609
  5. PRIVIGEN [Suspect]
     Active Substance: HUMAN IMMUNOGLOBULIN G
     Dosage: UNK
     Route: 042
     Dates: start: 20171106, end: 20171106
  6. PRIVIGEN [Suspect]
     Active Substance: HUMAN IMMUNOGLOBULIN G
     Dosage: UNK
     Route: 042
     Dates: start: 20210608, end: 20210608
  7. MIDAZOLAM. [Concomitant]
     Active Substance: MIDAZOLAM
     Dosage: 2.5 MILLIGRAM, QID
     Route: 045
  8. PRIVIGEN [Suspect]
     Active Substance: HUMAN IMMUNOGLOBULIN G
     Indication: ANTI-GAD ANTIBODY
     Dosage: UNK
     Route: 042
     Dates: start: 20171106, end: 20171106
  9. DIAZEPAM. [Concomitant]
     Active Substance: DIAZEPAM
     Dosage: 55 MILLIGRAM, QD
     Route: 065
  10. LAMOTRIGINE. [Concomitant]
     Active Substance: LAMOTRIGINE
     Dosage: 150 MILLIGRAM, BID
     Route: 065
  11. PRIVIGEN [Suspect]
     Active Substance: HUMAN IMMUNOGLOBULIN G
     Indication: ENCEPHALOPATHY
     Dosage: 20 GRAM (200 ML), 3 X PER 5 WEEKS
     Route: 042
  12. PRIVIGEN [Suspect]
     Active Substance: HUMAN IMMUNOGLOBULIN G
     Dosage: UNK
     Route: 042
     Dates: start: 20210609, end: 20210609
  13. BACLOFEN. [Concomitant]
     Active Substance: BACLOFEN
     Dosage: 15 MILLIGRAM, BID
     Route: 065

REACTIONS (9)
  - Myalgia [Unknown]
  - Tongue biting [Recovering/Resolving]
  - Contusion [Unknown]
  - Off label use [Unknown]
  - Myalgia [Recovering/Resolving]
  - Simple partial seizures [Unknown]
  - No adverse event [Unknown]
  - Epilepsy [Recovering/Resolving]
  - Fall [Unknown]

NARRATIVE: CASE EVENT DATE: 20210609
